FAERS Safety Report 5263810-7 (Version None)
Quarter: 2007Q1

REPORT INFORMATION
  Report Type: 
  Country: None (occurrence: None)
  Receive Date: 20070313
  Receipt Date: 20070308
  Transmission Date: 20070707
  Serious: Yes (Other)
  Sender: FDA-Public Use
  Company Number: US-GLAXOSMITHKLINE-A0642447A

PATIENT
  Age: 49 Year
  Sex: Female

DRUGS (15)
  1. ADVAIR DISKUS 100/50 [Suspect]
     Indication: CHRONIC OBSTRUCTIVE PULMONARY DISEASE
     Route: 055
     Dates: start: 20050101
  2. COREG [Suspect]
     Dosage: 12.5MG TWICE PER DAY
     Route: 048
     Dates: start: 20041101
  3. DUONEB [Concomitant]
  4. OXYGEN THERAPY [Concomitant]
  5. ALBUTEROL [Concomitant]
  6. FUROSEMIDE [Concomitant]
  7. CLONAZEPAM [Concomitant]
  8. FLUOXETINE [Concomitant]
  9. METFORMIN HCL [Concomitant]
  10. WARFARIN SODIUM [Concomitant]
  11. DIGOXIN [Concomitant]
  12. CAPTOPRIL [Concomitant]
  13. LIPITOR [Concomitant]
  14. GLYBURIDE [Concomitant]
  15. ADVAIR DISKUS 100/50 [Concomitant]

REACTIONS (1)
  - ASTHMA [None]
